FAERS Safety Report 6564469-9 (Version None)
Quarter: 2010Q1

REPORT INFORMATION
  Report Type: 
  Country: None (occurrence: None)
  Receive Date: 20100201
  Receipt Date: 20100122
  Transmission Date: 20100710
  Serious: Yes (Hospitalization)
  Sender: FDA-Public Use
  Company Number: US-ASTRAZENECA-2010SE03040

PATIENT
  Age: 30 Year
  Sex: Male

DRUGS (3)
  1. SEROQUEL XR [Suspect]
     Route: 048
  2. HALDOL [Concomitant]
  3. DEPAKOTE [Concomitant]

REACTIONS (1)
  - PANCREATITIS [None]
